FAERS Safety Report 6184070-9 (Version None)
Quarter: 2009Q2

REPORT INFORMATION
  Report Type: 
  Country: None (occurrence: None)
  Receive Date: 20090508
  Receipt Date: 20090505
  Transmission Date: 20091009
  Serious: Yes (Hospitalization)
  Sender: FDA-Public Use
  Company Number: CA-ABBOTT-09P-028-0571873-00

PATIENT
  Sex: Female
  Weight: 59.02 kg

DRUGS (2)
  1. HUMIRA [Suspect]
     Indication: RHEUMATOID ARTHRITIS
     Route: 058
     Dates: start: 20071007, end: 20090407
  2. HUMIRA [Suspect]
     Route: 058
     Dates: start: 20090101

REACTIONS (2)
  - ARTHROPATHY [None]
  - GASTRIC ULCER HAEMORRHAGE [None]
